FAERS Safety Report 8857163 (Version 2)
Quarter: 2012Q4

REPORT INFORMATION
  Report Type: Report from Study
  Country: US (occurrence: US)
  Receive Date: 20121024
  Receipt Date: 20121220
  Transmission Date: 20130627
  Serious: Yes (Hospitalization)
  Sender: FDA-Public Use
  Company Number: US-US-EMD SERONO, INC.-7158295

PATIENT
  Age: 33 None
  Sex: Male
  Weight: 95 kg

DRUGS (3)
  1. REBIF [Suspect]
     Indication: MULTIPLE SCLEROSIS
     Dates: start: 20101013, end: 20111124
  2. REBIF [Suspect]
     Route: 058
     Dates: start: 20120416, end: 20120916
  3. UNSPECIFIED MEDICATION [Concomitant]
     Indication: HYPERTENSION

REACTIONS (6)
  - Type 2 diabetes mellitus [Recovering/Resolving]
  - Balance disorder [Unknown]
  - Asthenia [Unknown]
  - Hypoaesthesia [Unknown]
  - Paraesthesia [Unknown]
  - Gait disturbance [Unknown]
